FAERS Safety Report 5457774-0 (Version None)
Quarter: 2007Q3

REPORT INFORMATION
  Report Type: 
  Country: None (occurrence: None)
  Receive Date: 20070917
  Receipt Date: 20070903
  Transmission Date: 20080115
  Serious: Yes (Hospitalization)
  Sender: FDA-Public Use
  Company Number: 018235

PATIENT
  Age: 54 Year
  Sex: Male

DRUGS (3)
  1. AZITHROMYCIN [Suspect]
     Indication: INFLUENZA
  2. ZANAMIVIR(ZANAMIVIR) [Suspect]
     Indication: INFLUENZA
  3. RIMANTIDINE(RIMANTADINE) [Suspect]
     Indication: INFLUENZA

REACTIONS (5)
  - GENITAL EROSION [None]
  - LINEAR IGA DISEASE [None]
  - MUCOSAL EROSION [None]
  - RESPIRATORY DISORDER [None]
  - SKIN EROSION [None]
